FAERS Safety Report 5808934-8 (Version None)
Quarter: 2008Q3

REPORT INFORMATION
  Report Type: 
  Country: None (occurrence: None)
  Receive Date: 20080714
  Receipt Date: 20080710
  Transmission Date: 20090109
  Serious: Yes (Life-Threatening, Hospitalization)
  Sender: FDA-Public Use
  Company Number: HQWYE998226APR06

PATIENT
  Sex: Female
  Weight: 72 kg

DRUGS (6)
  1. SIROLIMUS [Suspect]
     Indication: PROPHYLAXIS AGAINST TRANSPLANT REJECTION
     Dosage: 2 MG/FREQUENCY NOT PROVIDED
     Route: 048
     Dates: start: 20051125, end: 20060419
  2. SIROLIMUS [Suspect]
     Route: 048
     Dates: start: 20060505
  3. CELLCEPT [Concomitant]
     Dosage: NOT PROVIDED
     Route: 065
     Dates: end: 20060419
  4. CIPROFLOXACIN [Concomitant]
     Indication: PROPHYLAXIS
     Route: 048
     Dates: start: 20050809, end: 20060416
  5. ENALAPRIL MALEATE [Concomitant]
     Indication: HYPERTENSION
     Route: 048
     Dates: start: 20050308, end: 20060416
  6. SIMVASTATIN [Concomitant]
     Indication: DYSLIPIDAEMIA
     Route: 048
     Dates: start: 20060321, end: 20060416

REACTIONS (3)
  - ESCHERICHIA SEPSIS [None]
  - RENAL IMPAIRMENT [None]
  - RESPIRATORY DISTRESS [None]
